FAERS Safety Report 19454184 (Version 2)
Quarter: 2021Q3

REPORT INFORMATION
  Report Type: Report from Study
  Country: BR (occurrence: BR)
  Receive Date: 20210623
  Receipt Date: 20210708
  Transmission Date: 20211014
  Serious: Yes (Other)
  Sender: FDA-Public Use
  Company Number: NVSC2021BR130056

PATIENT
  Sex: Female
  Weight: 87 kg

DRUGS (8)
  1. COSENTYX [Suspect]
     Active Substance: SECUKINUMAB
     Dosage: 300 MG
     Route: 065
  2. COSENTYX [Suspect]
     Active Substance: SECUKINUMAB
     Indication: ANKYLOSING SPONDYLITIS
     Dosage: 150 MG
     Route: 065
     Dates: start: 20200812
  3. METHOTREXATE. [Concomitant]
     Active Substance: METHOTREXATE
     Indication: ANKYLOSING SPONDYLITIS
     Dosage: 7 DF, QD
     Route: 048
     Dates: start: 2011
  4. COSENTYX [Suspect]
     Active Substance: SECUKINUMAB
     Dosage: 150 MG, 1 PEN (EVERY 15 DAYS)
     Route: 058
     Dates: start: 20200814
  5. COSENTYX [Suspect]
     Active Substance: SECUKINUMAB
     Dosage: 300 MG, (2 PENS) QMO
     Route: 058
     Dates: end: 202105
  6. COLCHICINE. [Concomitant]
     Active Substance: COLCHICINE
     Indication: ANKYLOSING SPONDYLITIS
     Dosage: 1 DF, Q12H
     Route: 048
     Dates: start: 2011
  7. CALCIUM [Concomitant]
     Active Substance: CALCIUM
     Indication: PRODUCT USED FOR UNKNOWN INDICATION
     Dosage: UNK
     Route: 065
  8. FOLIC ACID. [Concomitant]
     Active Substance: FOLIC ACID
     Indication: ANKYLOSING SPONDYLITIS
     Dosage: 2 DF, QD
     Route: 048
     Dates: start: 2011

REACTIONS (19)
  - Shoulder deformity [Not Recovered/Not Resolved]
  - Inflammation [Not Recovered/Not Resolved]
  - Sensory loss [Unknown]
  - Insomnia [Unknown]
  - Fall [Recovered/Resolved]
  - Wrist deformity [Not Recovered/Not Resolved]
  - Meniscus injury [Not Recovered/Not Resolved]
  - Back pain [Unknown]
  - Paraesthesia [Not Recovered/Not Resolved]
  - Movement disorder [Not Recovered/Not Resolved]
  - Gait disturbance [Unknown]
  - Drug ineffective [Not Recovered/Not Resolved]
  - Hypertension [Unknown]
  - Pain [Unknown]
  - Oesophageal infection [Not Recovered/Not Resolved]
  - Coordination abnormal [Not Recovered/Not Resolved]
  - Arthralgia [Not Recovered/Not Resolved]
  - Bone pain [Unknown]
  - Head banging [Recovered/Resolved]
